FAERS Safety Report 20664237 (Version 3)
Quarter: 2022Q4

REPORT INFORMATION
  Report Type: Spontaneous
  Country: PL (occurrence: PL)
  Receive Date: 20220401
  Receipt Date: 20221227
  Transmission Date: 20230113
  Serious: Yes (Other)
  Sender: FDA-Public Use
  Company Number: PL-SA-2022SA063788

PATIENT
  Age: 31 Year
  Sex: Male

DRUGS (2)
  1. ARIPIPRAZOLE [Suspect]
     Active Substance: ARIPIPRAZOLE
     Indication: Schizophrenia
     Dosage: 15 MILLIGRAM, QD (15 MG DAILY)
     Route: 065
     Dates: start: 2016
  2. AMANTADINE [Suspect]
     Active Substance: AMANTADINE
     Indication: Libido decreased
     Dosage: 100 MILLIGRAM, QD (IN THE EVENING)
     Route: 065

REACTIONS (5)
  - Male sexual dysfunction [Recovered/Resolved]
  - Disturbance in sexual arousal [Recovering/Resolving]
  - Erectile dysfunction [Recovering/Resolving]
  - Libido decreased [Recovered/Resolved]
  - Off label use [Unknown]
